FAERS Safety Report 9605008 (Version 2)
Quarter: 2013Q4

REPORT INFORMATION
  Report Type: Spontaneous
  Country: FR (occurrence: FR)
  Receive Date: 20131008
  Receipt Date: 20131011
  Transmission Date: 20140711
  Serious: Yes (Death, Hospitalization)
  Sender: FDA-Public Use
  Company Number: FR-BAYER-2013-117698

PATIENT
  Age: 66 Year
  Sex: Male

DRUGS (1)
  1. REGORAFENIB [Suspect]
     Indication: GASTROINTESTINAL STROMAL CANCER
     Dosage: 160 MG, THREE-WEEKS ON/ONE-WEEK OFF
     Route: 048

REACTIONS (2)
  - Intestinal perforation [None]
  - Septic shock [Fatal]
